FAERS Safety Report 12256013 (Version 1)
Quarter: 2016Q2

REPORT INFORMATION
  Report Type: Spontaneous
  Country: US (occurrence: None)
  Receive Date: 20160411
  Receipt Date: 20160411
  Transmission Date: 20160815
  Serious: Yes (Hospitalization)
  Sender: FDA-Public Use
  Company Number: None

PATIENT
  Age: 69 Year
  Sex: Female
  Weight: 83.6 kg

DRUGS (1)
  1. BEVACIZUMAB (RHUMAB VEGF) [Suspect]
     Active Substance: BEVACIZUMAB
     Dates: end: 20160318

REACTIONS (11)
  - Back pain [None]
  - Hypophagia [None]
  - Urinary retention [None]
  - Mobility decreased [None]
  - Nephrolithiasis [None]
  - Somnolence [None]
  - Condition aggravated [None]
  - Infrequent bowel movements [None]
  - Aphasia [None]
  - Muscular weakness [None]
  - Fluid intake reduced [None]

NARRATIVE: CASE EVENT DATE: 20160326
